FAERS Safety Report 7394868-7 (Version None)
Quarter: 2011Q2

REPORT INFORMATION
  Report Type: 
  Country: None (occurrence: None)
  Receive Date: 20110405
  Receipt Date: 20110328
  Transmission Date: 20111010
  Serious: Yes (Other)
  Sender: FDA-Public Use
  Company Number: A0921154A

PATIENT
  Sex: Female

DRUGS (1)
  1. FLOLAN [Suspect]
     Indication: PULMONARY HYPERTENSION
     Route: 042

REACTIONS (7)
  - CONDITION AGGRAVATED [None]
  - CYANOSIS [None]
  - DYSGEUSIA [None]
  - MOUNTAIN SICKNESS ACUTE [None]
  - RIGHT VENTRICULAR FAILURE [None]
  - FATIGUE [None]
  - PALPITATIONS [None]
